FAERS Safety Report 11077536 (Version 2)
Quarter: 2015Q2

REPORT INFORMATION
  Report Type: Spontaneous
  Country: US (occurrence: US)
  Receive Date: 20150430
  Receipt Date: 20150526
  Transmission Date: 20150821
  Serious: No
  Sender: FDA-Public Use
  Company Number: US-JNJFOC-20131015794

PATIENT
  Sex: Male
  Weight: 65.77 kg

DRUGS (1)
  1. PANCREAZE [Suspect]
     Active Substance: PANCRELIPASE
     Indication: PANCREATIC DUCT OBSTRUCTION
     Dosage: 16,800 USP/CAPSULE/16,800 USP/2-4??CAPSULES WITH EACH SNACK OR MEAL
     Route: 065
     Dates: start: 2010

REACTIONS (3)
  - Wrong technique in drug usage process [Not Recovered/Not Resolved]
  - Incorrect dose administered [Unknown]
  - Product packaging issue [Unknown]

NARRATIVE: CASE EVENT DATE: 2010
